FAERS Safety Report 4926466-6 (Version None)
Quarter: 2006Q1

REPORT INFORMATION
  Report Type: 
  Country: None (occurrence: None)
  Receive Date: 20060228
  Receipt Date: 20051128
  Transmission Date: 20060701
  Serious: No
  Sender: FDA-Public Use
  Company Number: US-GLAXOSMITHKLINE-A0584204A

PATIENT
  Sex: Female
  Weight: 125.5 kg

DRUGS (4)
  1. LAMICTAL [Suspect]
     Dosage: 150MG UNKNOWN
     Route: 048
     Dates: start: 20040201
  2. WELLBUTRIN [Suspect]
     Indication: DRUG USE FOR UNKNOWN INDICATION
     Dosage: 300MG UNKNOWN
     Route: 048
  3. LEXAPRO [Suspect]
     Dosage: 20MG UNKNOWN
     Route: 065
     Dates: start: 20040201
  4. SEROQUEL [Suspect]
     Dosage: 100MG UNKNOWN
     Route: 065
     Dates: start: 20040201

REACTIONS (6)
  - BEDRIDDEN [None]
  - DEPRESSION [None]
  - MALAISE [None]
  - NAUSEA [None]
  - WEIGHT DECREASED [None]
  - WEIGHT INCREASED [None]
